FAERS Safety Report 8103014-3 (Version None)
Quarter: 2012Q1

REPORT INFORMATION
  Report Type: 
  Country: None (occurrence: None)
  Receive Date: 20120201
  Receipt Date: 20120201
  Transmission Date: 20120608
  Serious: Yes (Life-Threatening, Hospitalization)
  Sender: FDA-Public Use
  Company Number: None

PATIENT
  Age: 45 Year
  Sex: Female
  Weight: 109.31 kg

DRUGS (1)
  1. LISINOPRIL AND HYDROCHLOROTHIAZIDE [Suspect]
     Indication: HYPERTENSION
     Dosage: 10-12 MG
     Route: 048

REACTIONS (2)
  - RASH [None]
  - SECRETION DISCHARGE [None]
